FAERS Safety Report 6370771-6 (Version None)
Quarter: 2009Q3

REPORT INFORMATION
  Report Type: 
  Country: None (occurrence: None)
  Receive Date: 20090923
  Receipt Date: 20070614
  Transmission Date: 20100115
  Serious: No
  Sender: FDA-Public Use
  Company Number: US-ASTRAZENECA-2006UW24754

PATIENT
  Age: 52 Year
  Sex: Female
  Weight: 100.7 kg

DRUGS (20)
  1. SEROQUEL [Suspect]
     Indication: SLEEP DISORDER
     Dosage: 100-200 MG
     Route: 048
     Dates: start: 20050501
  2. GEODON [Concomitant]
     Route: 065
  3. ZESTORETIC [Concomitant]
     Dosage: 20/12.5MG, 20/25 ONE Q.D.
     Route: 048
  4. GLUCOPHAGE [Concomitant]
     Dosage: 100-500 MG
     Route: 048
  5. GLUCOPHAGE [Concomitant]
     Route: 048
  6. DIOVAN [Concomitant]
     Dosage: 60 MG Q.D.,160 MG Q.D.
     Route: 048
  7. AMARYL [Concomitant]
     Route: 048
     Dates: start: 20040406
  8. AMARYL [Concomitant]
     Route: 048
  9. MOBIC [Concomitant]
     Route: 048
  10. ELAVIL [Concomitant]
     Indication: NEURALGIA
     Route: 048
  11. NORVASC [Concomitant]
     Dosage: 2.5-10 MG A DAY
     Route: 065
  12. TRAZODONE [Concomitant]
     Dosage: 100-150 MG
     Route: 048
  13. PREVACID [Concomitant]
     Route: 048
     Dates: start: 20030409
  14. PREVACID [Concomitant]
     Route: 048
  15. PROZAC [Concomitant]
     Dosage: 10-20 MG
     Route: 048
  16. PROZAC [Concomitant]
     Route: 065
  17. ZESTRIL [Concomitant]
     Indication: RENAL IMPAIRMENT
     Dosage: 10-20 MG
     Route: 048
  18. HUMULIN 70/30 [Concomitant]
     Dosage: 30 UNITS
     Route: 058
  19. COMBIVENT [Concomitant]
     Dosage: 2 PUFFS Q.I.D., 2 PUFFS TWO TIMES A DAY
     Route: 048
  20. ADVAIR HFA [Concomitant]
     Dosage: 100 MCG/ 50 MCG, ONE INHALATION TWICE  A DAY
     Route: 048

REACTIONS (10)
  - ABDOMINAL PAIN UPPER [None]
  - COUGH [None]
  - DECREASED APPETITE [None]
  - DIABETES MELLITUS [None]
  - DYSPEPSIA [None]
  - DYSPHAGIA [None]
  - DYSPHONIA [None]
  - DYSPNOEA [None]
  - MALIGNANT HYPERTENSION [None]
  - URINARY INCONTINENCE [None]
